FAERS Safety Report 6063810-3 (Version None)
Quarter: 2009Q1

REPORT INFORMATION
  Report Type: 
  Country: None (occurrence: None)
  Receive Date: 20090204
  Receipt Date: 20090128
  Transmission Date: 20090719
  Serious: Yes (Death)
  Sender: FDA-Public Use
  Company Number: JP-ELI_LILLY_AND_COMPANY-JP200901002268

PATIENT
  Sex: Male
  Weight: 66.1 kg

DRUGS (3)
  1. LISPRO NPL [Suspect]
     Indication: TYPE 2 DIABETES MELLITUS
     Dosage: 8 IU, DAILY (1/D)
     Dates: start: 20080115, end: 20080521
  2. HUMULIN R [Concomitant]
     Indication: TYPE 2 DIABETES MELLITUS
     Dosage: 24 IU, UNK
     Dates: end: 20080521
  3. PANALDINE [Concomitant]
     Indication: CEREBRAL INFARCTION
     Dosage: 100 MG, DAILY (1/D)
     Route: 048
     Dates: end: 20080521

REACTIONS (1)
  - CEREBRAL INFARCTION [None]
